FAERS Safety Report 9199923 (Version 1)
Quarter: 2013Q1

REPORT INFORMATION
  Report Type: Spontaneous
  Country: US (occurrence: US)
  Receive Date: 20130329
  Receipt Date: 20130329
  Transmission Date: 20140127
  Serious: Yes (Death)
  Sender: FDA-Public Use
  Company Number: US-TEVA-395133USA

PATIENT
  Sex: Male

DRUGS (3)
  1. TREANDA [Suspect]
     Indication: WALDENSTROM^S MACROGLOBULINAEMIA
  2. RITUXAN [Concomitant]
     Indication: WALDENSTROM^S MACROGLOBULINAEMIA
  3. CORTICOSTEROID NOS [Concomitant]

REACTIONS (2)
  - Acute myeloid leukaemia [Fatal]
  - Chills [Not Recovered/Not Resolved]
